FAERS Safety Report 7748222-6 (Version None)
Quarter: 2011Q3

REPORT INFORMATION
  Report Type: 
  Country: None (occurrence: None)
  Receive Date: 20110913
  Receipt Date: 20110621
  Transmission Date: 20111222
  Serious: No
  Sender: FDA-Public Use
  Company Number: US-ELI_LILLY_AND_COMPANY-US201106006754

PATIENT
  Age: 91 Year
  Sex: Female

DRUGS (2)
  1. HYDROCODONE [Concomitant]
  2. CYMBALTA [Suspect]
     Indication: MAJOR DEPRESSION
     Dosage: UNK, QD
     Dates: start: 20110101

REACTIONS (1)
  - HEPATIC ENZYME INCREASED [None]
